FAERS Safety Report 4920425-5 (Version None)
Quarter: 2006Q1

REPORT INFORMATION
  Report Type: 
  Country: None (occurrence: None)
  Receive Date: 20060223
  Receipt Date: 20051013
  Transmission Date: 20060701
  Serious: Yes (Hospitalization, Other)
  Sender: FDA-Public Use
  Company Number: US-MERCK-0510USA07311

PATIENT
  Age: 38 Year
  Sex: Male
  Weight: 97 kg

DRUGS (6)
  1. VIOXX [Suspect]
     Indication: ARTHRALGIA
     Route: 048
     Dates: start: 20000101, end: 20040101
  2. SUDAFED 12 HOUR [Concomitant]
     Route: 065
     Dates: start: 20000101, end: 20000101
  3. CELEBREX [Suspect]
     Indication: OSTEOARTHRITIS
     Route: 065
     Dates: start: 20020101
  4. CELEBREX [Suspect]
     Indication: PAIN
     Route: 065
     Dates: start: 20020101
  5. BEXTRA [Suspect]
     Indication: OSTEOARTHRITIS
     Route: 065
     Dates: start: 20020101
  6. BEXTRA [Suspect]
     Indication: PAIN
     Route: 065
     Dates: start: 20020101

REACTIONS (14)
  - ANXIETY [None]
  - CHEST PAIN [None]
  - DEPRESSION [None]
  - DYSPNOEA [None]
  - EMOTIONAL DISTRESS [None]
  - HEART RATE IRREGULAR [None]
  - HYPERHIDROSIS [None]
  - HYPERTENSION [None]
  - INJURY [None]
  - MENISCUS LESION [None]
  - MYOCARDIAL INFARCTION [None]
  - NERVOUSNESS [None]
  - OEDEMA PERIPHERAL [None]
  - SILENT MYOCARDIAL INFARCTION [None]
